FAERS Safety Report 25160479 (Version 1)
Quarter: 2025Q2

REPORT INFORMATION
  Report Type: Spontaneous
  Country: US (occurrence: None)
  Receive Date: 20250403
  Receipt Date: 20250403
  Transmission Date: 20250716
  Serious: Yes (unspecified)
  Sender: FDA-CTU
  Company Number: None

PATIENT
  Age: 66 Year
  Sex: Female
  Weight: 74.25 kg

DRUGS (8)
  1. CONTRAVE [Suspect]
     Active Substance: BUPROPION HYDROCHLORIDE\NALTREXONE HYDROCHLORIDE
     Indication: Weight decreased
     Dosage: 1 TABLET  DAILY ORAL
     Route: 048
     Dates: start: 20250317, end: 20250329
  2. LATANOPROST [Concomitant]
     Active Substance: LATANOPROST
  3. OLMESARTAN [Concomitant]
     Active Substance: OLMESARTAN
  4. METOPROLOL SUCCINATE [Concomitant]
     Active Substance: METOPROLOL SUCCINATE
  5. LEVOTHYROXINE [Concomitant]
     Active Substance: LEVOTHYROXINE
  6. VITAMIN D [Concomitant]
     Active Substance: VITAMIN D NOS
  7. BERBERINE [Concomitant]
     Active Substance: BERBERINE
  8. PROBIOTICS NOS [Concomitant]
     Active Substance: PROBIOTICS NOS

REACTIONS (6)
  - Headache [None]
  - Nausea [None]
  - Dry mouth [None]
  - Constipation [None]
  - Abdominal pain upper [None]
  - Anxiety [None]

NARRATIVE: CASE EVENT DATE: 20250317
